FAERS Safety Report 5514995-6 (Version None)
Quarter: 2007Q4

REPORT INFORMATION
  Report Type: 
  Country: None (occurrence: None)
  Receive Date: 20071113
  Receipt Date: 20061106
  Transmission Date: 20080405
  Serious: No
  Sender: FDA-Public Use
  Company Number: A0626360A

PATIENT
  Age: 55 Year
  Sex: Male

DRUGS (3)
  1. COREG [Suspect]
     Route: 048
     Dates: start: 20050601
  2. LOTREL [Concomitant]
  3. ASPIRIN [Concomitant]

REACTIONS (1)
  - FATIGUE [None]
